FAERS Safety Report 21788680 (Version 1)
Quarter: 2022Q4

REPORT INFORMATION
  Report Type: Spontaneous
  Country: US (occurrence: None)
  Receive Date: 20221228
  Receipt Date: 20221228
  Transmission Date: 20230112
  Serious: No
  Sender: FDA-Public Use
  Company Number: 2022A395367

PATIENT
  Sex: Female
  Weight: 47.2 kg

DRUGS (1)
  1. BUDESONIDE\FORMOTEROL FUMARATE DIHYDRATE [Suspect]
     Active Substance: BUDESONIDE\FORMOTEROL FUMARATE DIHYDRATE
     Indication: Chronic obstructive pulmonary disease
     Dosage: 80/4.5
     Route: 055
     Dates: start: 202106

REACTIONS (4)
  - Inappropriate schedule of product administration [Unknown]
  - Medication error [Unknown]
  - Intentional product misuse [Unknown]
  - Feeling abnormal [Unknown]
